FAERS Safety Report 18395655 (Version 4)
Quarter: 2025Q1

REPORT INFORMATION
  Report Type: Report from Study
  Country: US (occurrence: US)
  Receive Date: 20201017
  Receipt Date: 20250130
  Transmission Date: 20250409
  Serious: Yes (Other)
  Sender: TAKEDA
  Company Number: US-SHIRE-US202033949

PATIENT
  Sex: Female
  Weight: 74 kg

DRUGS (33)
  1. HUMAN IMMUNOGLOBULIN G [Suspect]
     Active Substance: HUMAN IMMUNOGLOBULIN G
     Indication: Immunodeficiency common variable
     Dosage: 12 GRAM, 1/WEEK
     Dates: start: 20120607
  2. HUMAN IMMUNOGLOBULIN G [Suspect]
     Active Substance: HUMAN IMMUNOGLOBULIN G
     Dosage: 12 GRAM, 1/WEEK
     Dates: start: 20120927
  3. HUMAN IMMUNOGLOBULIN G [Suspect]
     Active Substance: HUMAN IMMUNOGLOBULIN G
     Dosage: 12 GRAM, 1/WEEK
  4. ACETAMINOPHEN [Concomitant]
     Active Substance: ACETAMINOPHEN
  5. NASACORT [Concomitant]
     Active Substance: TRIAMCINOLONE ACETONIDE
  6. ALBUTEROL SULFATE [Concomitant]
     Active Substance: ALBUTEROL SULFATE
  7. SINGULAIR [Concomitant]
     Active Substance: MONTELUKAST SODIUM
  8. OMEPRAZOLE [Concomitant]
     Active Substance: OMEPRAZOLE
  9. ESTRADIOL [Concomitant]
     Active Substance: ESTRADIOL
  10. LISINOPRIL [Concomitant]
     Active Substance: LISINOPRIL
  11. ALBUTEROL SULFATE [Concomitant]
     Active Substance: ALBUTEROL SULFATE
  12. LIDOCAINE [Concomitant]
     Active Substance: LIDOCAINE
  13. CELEBREX [Concomitant]
     Active Substance: CELECOXIB
  14. ACETAMINOPHEN\HYDROCODONE [Concomitant]
     Active Substance: ACETAMINOPHEN\HYDROCODONE
  15. DILTIAZEM [Concomitant]
     Active Substance: DILTIAZEM
  16. SPIRIVA RESPIMAT [Concomitant]
     Active Substance: TIOTROPIUM BROMIDE
  17. XOLAIR [Concomitant]
     Active Substance: OMALIZUMAB
  18. DIPHENHYDRAMINE [Concomitant]
     Active Substance: DIPHENHYDRAMINE
  19. FLUZONE QUADRIVALENT NOS [Concomitant]
     Active Substance: INFLUENZA A VIRUS A/CALIFORNIA/7/2009 X-179A (H1N1) ANTIGEN (FORMALDEHYDE INACTIVATED)\INFLUENZA A V
  20. EPINEPHRINE [Concomitant]
     Active Substance: EPINEPHRINE
  21. METOPROLOL SUCCINATE [Concomitant]
     Active Substance: METOPROLOL SUCCINATE
  22. VENTOLIN [Concomitant]
     Active Substance: ALBUTEROL SULFATE
  23. PREDNISONE [Concomitant]
     Active Substance: PREDNISONE
  24. MEDROL [Concomitant]
     Active Substance: METHYLPREDNISOLONE
  25. FLECAINIDE [Concomitant]
     Active Substance: FLECAINIDE
  26. LEVALBUTEROL [Concomitant]
     Active Substance: LEVALBUTEROL
  27. ROSUVASTATIN [Concomitant]
     Active Substance: ROSUVASTATIN
  28. METOPROLOL [Concomitant]
     Active Substance: METOPROLOL
  29. AZELASTINE [Concomitant]
     Active Substance: AZELASTINE
  30. AZELASTINE HYDROCHLORIDE [Concomitant]
     Active Substance: AZELASTINE HYDROCHLORIDE
  31. LEVALBUTEROL TARTRATE [Concomitant]
     Active Substance: LEVALBUTEROL TARTRATE
  32. DIPHENHYDRAMINE HYDROCHLORIDE [Concomitant]
     Active Substance: DIPHENHYDRAMINE HYDROCHLORIDE
  33. ROSUVASTATIN CALCIUM [Concomitant]
     Active Substance: ROSUVASTATIN CALCIUM

REACTIONS (25)
  - Neurological infection [Unknown]
  - Gastroenteritis viral [Unknown]
  - Tooth infection [Unknown]
  - Febrile infection [Unknown]
  - Nasopharyngitis [Unknown]
  - Postural orthostatic tachycardia syndrome [Unknown]
  - Food poisoning [Unknown]
  - Gastrointestinal disorder [Unknown]
  - COVID-19 [Unknown]
  - Illness [Unknown]
  - Sneezing [Unknown]
  - Multiple allergies [Recovered/Resolved]
  - Poor venous access [Unknown]
  - Syringe issue [Unknown]
  - Inappropriate schedule of product administration [Unknown]
  - Incorrect drug administration rate [Unknown]
  - Product dose omission issue [Unknown]
  - Influenza [Unknown]
  - Nasal congestion [Unknown]
  - Swelling [Unknown]
  - Pain [Unknown]
  - Vomiting [Unknown]
  - Pyrexia [Unknown]
  - Diarrhoea [Unknown]
  - Urticaria [Unknown]
